FAERS Safety Report 16129175 (Version 3)
Quarter: 2025Q1

REPORT INFORMATION
  Report Type: Report from Study
  Country: US (occurrence: US)
  Receive Date: 20190328
  Receipt Date: 20250331
  Transmission Date: 20250409
  Serious: No
  Sender: TAKEDA
  Company Number: US-SHIRE-US201849967

PATIENT
  Age: 23 Year
  Sex: Male

DRUGS (7)
  1. PARATHYROID HORMONE [Suspect]
     Active Substance: PARATHYROID HORMONE
     Indication: Hypoparathyroidism
  2. PARATHYROID HORMONE [Suspect]
     Active Substance: PARATHYROID HORMONE
     Dosage: 50 MICROGRAM, QD
     Dates: start: 20170817
  3. PARATHYROID HORMONE [Suspect]
     Active Substance: PARATHYROID HORMONE
     Dosage: 75 MICROGRAM, QD
     Dates: start: 20190321
  4. PARATHYROID HORMONE [Suspect]
     Active Substance: PARATHYROID HORMONE
  5. PARATHYROID HORMONE [Suspect]
     Active Substance: PARATHYROID HORMONE
  6. CALCIUM [Concomitant]
     Active Substance: CALCIUM
     Indication: Product used for unknown indication
  7. CALCITRIOL [Concomitant]
     Active Substance: CALCITRIOL
     Indication: Product used for unknown indication

REACTIONS (4)
  - Paraesthesia oral [Unknown]
  - Product dose omission issue [Unknown]
  - Off label use [Unknown]
  - Expired device used [Unknown]

NARRATIVE: CASE EVENT DATE: 20181228
